FAERS Safety Report 6193059-5 (Version None)
Quarter: 2009Q2

REPORT INFORMATION
  Report Type: 
  Country: None (occurrence: None)
  Receive Date: 20090518
  Receipt Date: 20090512
  Transmission Date: 20091009
  Serious: Yes (Other)
  Sender: FDA-Public Use
  Company Number: US-ASTRAZENECA-2009UW11554

PATIENT
  Sex: Female

DRUGS (5)
  1. SEROQUEL [Suspect]
     Indication: BIPOLAR DISORDER
     Route: 048
     Dates: start: 20080601
  2. LAMOTRIGINE [Concomitant]
  3. BENADRYL [Concomitant]
  4. CELEXA [Concomitant]
  5. CLONAZEPAM [Concomitant]

REACTIONS (1)
  - MUSCULAR WEAKNESS [None]
